FAERS Safety Report 4392683-X (Version None)
Quarter: 2004Q3

REPORT INFORMATION
  Report Type: 
  Country: None (occurrence: None)
  Receive Date: 20040708
  Receipt Date: 20040628
  Transmission Date: 20050211
  Serious: Yes (Other)
  Sender: FDA-Public Use
  Company Number: PHBS2004NO08833

PATIENT
  Age: 30 Year
  Sex: Male

DRUGS (9)
  1. CLOZAPINE [Suspect]
     Route: 065
  2. HALDOL [Suspect]
     Route: 065
  3. CHLORPROMAZINE [Suspect]
     Route: 065
  4. MELLARIL [Suspect]
     Route: 065
  5. NOZINAN [Suspect]
     Route: 065
  6. RISPERDAL [Suspect]
     Route: 065
  7. SERDOLECT [Suspect]
     Route: 065
  8. SOBRIL [Suspect]
     Route: 065
  9. ZYPREXA [Suspect]
     Route: 065

REACTIONS (1)
  - DYSTONIA [None]
